FAERS Safety Report 6885790-0 (Version None)
Quarter: 2010Q3

REPORT INFORMATION
  Report Type: 
  Country: None (occurrence: None)
  Receive Date: 20100729
  Receipt Date: 20080325
  Transmission Date: 20110219
  Serious: Yes (Other)
  Sender: FDA-Public Use
  Company Number: US-PFIZER INC-2008013428

PATIENT
  Sex: Female
  Weight: 75.8 kg

DRUGS (3)
  1. CELEBREX [Suspect]
     Indication: ARTHRITIS
     Route: 048
     Dates: start: 20080117, end: 20080204
  2. CELEBREX [Suspect]
     Indication: SYSTEMIC LUPUS ERYTHEMATOSUS
  3. PLAQUENIL [Suspect]
     Route: 048
     Dates: start: 20080117

REACTIONS (1)
  - ERYTHEMA MULTIFORME [None]
